FAERS Safety Report 5853238-0 (Version None)
Quarter: 2008Q3

REPORT INFORMATION
  Report Type: 
  Country: None (occurrence: None)
  Receive Date: 20080820
  Receipt Date: 20080806
  Transmission Date: 20090109
  Serious: Yes (Hospitalization, Other)
  Sender: FDA-Public Use
  Company Number: OPER20080157

PATIENT
  Age: 48 Year
  Sex: Male

DRUGS (1)
  1. OPANA ER [Suspect]
     Indication: BACK PAIN
     Dosage: 40 MG, 1 TABLET TID, PER ORAL
     Route: 048
     Dates: start: 20050501, end: 20070704

REACTIONS (7)
  - DEHYDRATION [None]
  - DRUG ABUSE [None]
  - DRUG WITHDRAWAL SYNDROME [None]
  - HYPERREFLEXIA [None]
  - MYOCLONUS [None]
  - NAUSEA [None]
  - VOMITING [None]
